FAERS Safety Report 9797259 (Version 2)
Quarter: 2014Q1

REPORT INFORMATION
  Report Type: Spontaneous
  Country: US (occurrence: US)
  Receive Date: 20140106
  Receipt Date: 20140318
  Transmission Date: 20141002
  Serious: No
  Sender: FDA-Public Use
  Company Number: US-BIOGENIDEC-2014BI000588

PATIENT
  Age: 58 Year
  Sex: Female

DRUGS (2)
  1. AVONEX [Suspect]
     Indication: MULTIPLE SCLEROSIS
     Route: 030
     Dates: start: 20130328
  2. AVONEX [Suspect]
     Indication: MULTIPLE SCLEROSIS
     Route: 030
     Dates: start: 20131206

REACTIONS (9)
  - Multiple sclerosis [Not Recovered/Not Resolved]
  - Physiotherapy [Not Recovered/Not Resolved]
  - Visual impairment [Recovered/Resolved]
  - Mobility decreased [Not Recovered/Not Resolved]
  - Gait disturbance [Recovered/Resolved]
  - Vein disorder [Recovered/Resolved]
  - Anxiety [Not Recovered/Not Resolved]
  - Fatigue [Recovered/Resolved]
  - Rash generalised [Recovered/Resolved]
